FAERS Safety Report 4981492-6 (Version None)
Quarter: 2006Q2

REPORT INFORMATION
  Report Type: 
  Country: None (occurrence: None)
  Receive Date: 20060424
  Receipt Date: 20060124
  Transmission Date: 20061013
  Serious: Yes (Hospitalization)
  Sender: FDA-Public Use
  Company Number: US-MERCK-0601USA02931

PATIENT
  Age: 45 Year
  Sex: Female
  Weight: 90 kg

DRUGS (7)
  1. VIOXX [Suspect]
     Indication: JUVENILE ARTHRITIS
     Route: 048
     Dates: start: 20020625, end: 20040229
  2. DYAZIDE [Concomitant]
     Route: 065
     Dates: start: 20000101, end: 20040201
  3. ALBUTEROL [Concomitant]
     Indication: ASTHMA
     Route: 065
  4. PREDNISONE [Concomitant]
     Route: 065
  5. ZYRTEC [Concomitant]
     Indication: HYPERSENSITIVITY
     Route: 065
  6. NEXIUM [Concomitant]
     Indication: GASTROOESOPHAGEAL REFLUX DISEASE
     Route: 065
  7. ADVAIR DISKUS 100/50 [Concomitant]
     Indication: ASTHMA
     Route: 065

REACTIONS (7)
  - ANXIETY [None]
  - ARRHYTHMIA [None]
  - DEPRESSION [None]
  - EAR DISORDER [None]
  - EYE DISORDER [None]
  - HIP ARTHROPLASTY [None]
  - MYOCARDIAL INFARCTION [None]
